FAERS Safety Report 13960467 (Version 2)
Quarter: 2018Q3

REPORT INFORMATION
  Report Type: Spontaneous
  Country: US (occurrence: US)
  Receive Date: 20170912
  Receipt Date: 20180828
  Transmission Date: 20181010
  Serious: No
  Sender: FDA-Public Use
  Company Number: US-ALLERGAN-1735803US

PATIENT
  Age: 82 Year
  Sex: Female

DRUGS (10)
  1. LEXAPRO [Suspect]
     Active Substance: ESCITALOPRAM OXALATE
     Indication: GENERALISED ANXIETY DISORDER
     Dosage: 1 DF, UNKNOWN
     Route: 048
  2. ASPIRIN. [Interacting]
     Active Substance: ASPIRIN
     Indication: PRODUCT USED FOR UNKNOWN INDICATION
     Dosage: LOW DOSE
     Route: 065
  3. PREMARIN [Concomitant]
     Active Substance: ESTROGENS, CONJUGATED
     Indication: PRODUCT USED FOR UNKNOWN INDICATION
     Dosage: LOWEST DOSE
     Route: 065
  4. SYNTHROID [Concomitant]
     Active Substance: LEVOTHYROXINE SODIUM
     Indication: HYPOTHYROIDISM
     Dosage: 25 ?G, UNK
     Route: 065
  5. LEXAPRO [Suspect]
     Active Substance: ESCITALOPRAM OXALATE
     Dosage: 1 DF, UNKNOWN
     Route: 048
  6. LEXAPRO [Suspect]
     Active Substance: ESCITALOPRAM OXALATE
     Dosage: 0.5 DF, UNKNOWN
     Route: 048
  7. VITAMIN C [Concomitant]
     Active Substance: ASCORBIC ACID
     Indication: SUPPLEMENTATION THERAPY
     Dosage: UNK
     Route: 065
  8. LEXAPRO [Suspect]
     Active Substance: ESCITALOPRAM OXALATE
     Dosage: 0.5 DF, UNKNOWN
     Route: 048
     Dates: start: 201702
  9. BENICAR [Concomitant]
     Active Substance: OLMESARTAN MEDOXOMIL
     Indication: PRODUCT USED FOR UNKNOWN INDICATION
     Dosage: UNK
     Route: 065
  10. VITAMIN E [Concomitant]
     Active Substance: .ALPHA.-TOCOPHEROL
     Indication: SUPPLEMENTATION THERAPY
     Dosage: UNK
     Route: 065

REACTIONS (6)
  - Wrong technique in product usage process [Unknown]
  - Hiatus hernia [Not Recovered/Not Resolved]
  - Dizziness [Recovered/Resolved]
  - Feeling hot [Recovered/Resolved]
  - Drug interaction [Unknown]
  - Vertigo [Recovered/Resolved]

NARRATIVE: CASE EVENT DATE: 201702
